FAERS Safety Report 7139394-5 (Version None)
Quarter: 2010Q4

REPORT INFORMATION
  Report Type: 
  Country: None (occurrence: None)
  Receive Date: 20101206
  Receipt Date: 20101125
  Transmission Date: 20110411
  Serious: Yes (Hospitalization)
  Sender: FDA-Public Use
  Company Number: JP-ASTRAZENECA-2010SE46725

PATIENT
  Age: 37 Year
  Sex: Female

DRUGS (4)
  1. ATACAND HCT [Suspect]
     Indication: HYPERTENSION
     Dosage: 16/12.5 MG/DAY
     Route: 048
     Dates: end: 20090720
  2. METOPROLOL SUCCINATE [Concomitant]
     Route: 048
     Dates: end: 20090720
  3. TORASEMIDE [Concomitant]
     Indication: HYPERTENSION
     Route: 048
     Dates: end: 20090720
  4. AMLODIPINE [Concomitant]
     Route: 048
     Dates: end: 20090720

REACTIONS (3)
  - DRUG EXPOSURE DURING PREGNANCY [None]
  - OLIGOHYDRAMNIOS [None]
  - PRE-ECLAMPSIA [None]
